FAERS Safety Report 17890804 (Version 6)
Quarter: 2020Q3

REPORT INFORMATION
  Report Type: Report from Study
  Country: US (occurrence: US)
  Receive Date: 20200612
  Receipt Date: 20200904
  Transmission Date: 20201103
  Serious: Yes (Hospitalization)
  Sender: FDA-Public Use
  Company Number: US-SEATTLE GENETICS-2020SGN01617

PATIENT
  Age: 29 Year
  Sex: Female
  Weight: 46 kg

DRUGS (20)
  1. TUCATINIB [Suspect]
     Active Substance: TUCATINIB
     Indication: HER2 POSITIVE BREAST CANCER
     Dosage: 300 MG, BID
     Route: 048
     Dates: start: 20200226, end: 20200309
  2. DECADRON [Concomitant]
     Active Substance: DEXAMETHASONE
     Dosage: 4 MG, UNK
     Route: 048
     Dates: start: 20200211
  3. DURAGESIC [Concomitant]
     Active Substance: FENTANYL
     Dosage: 50 UNK, UNK
     Route: 062
     Dates: start: 20200318
  4. PHENERGAN [Concomitant]
     Active Substance: PROMETHAZINE HYDROCHLORIDE
     Indication: NAUSEA
  5. TUCATINIB [Suspect]
     Active Substance: TUCATINIB
     Dosage: 250 MG, BID
     Route: 048
     Dates: start: 20200313, end: 20200319
  6. CAPECITABINE. [Suspect]
     Active Substance: CAPECITABINE
     Indication: HER2 POSITIVE BREAST CANCER
     Dosage: 1000 MG/M2, BID
     Route: 048
     Dates: start: 20200226, end: 20200319
  7. IMODIUM [Concomitant]
     Active Substance: LOPERAMIDE HYDROCHLORIDE
     Indication: DIARRHOEA
     Dosage: 2 MG, QID
     Route: 048
     Dates: start: 20200311, end: 20200321
  8. EMLA [Concomitant]
     Active Substance: LIDOCAINE\PRILOCAINE
     Dosage: 2.5 %, PRN
     Route: 061
     Dates: start: 20191016
  9. ZYPREXA [Concomitant]
     Active Substance: OLANZAPINE
     Dosage: 5 MG, QD
     Route: 048
     Dates: start: 20200306
  10. ZOFRAN [Concomitant]
     Active Substance: ONDANSETRON HYDROCHLORIDE
     Indication: NAUSEA
  11. TRASTUZUMAB. [Suspect]
     Active Substance: TRASTUZUMAB
     Dosage: 6 MG/KG, Q21D
     Route: 042
     Dates: end: 20200316
  12. ZOFRAN [Concomitant]
     Active Substance: ONDANSETRON HYDROCHLORIDE
     Indication: VOMITING
     Dosage: 8 MG, PRN
     Route: 048
     Dates: start: 20200306
  13. ROXICODONE [Concomitant]
     Active Substance: OXYCODONE HYDROCHLORIDE
     Indication: PAIN
     Dosage: 30 MG, PRN
     Route: 048
     Dates: start: 20200225
  14. TRASTUZUMAB. [Suspect]
     Active Substance: TRASTUZUMAB
     Indication: HER2 POSITIVE BREAST CANCER
     Dosage: 8 MG/KG, SINGLE
     Route: 042
     Dates: start: 20200226, end: 20200226
  15. LEXAPRO [Concomitant]
     Active Substance: ESCITALOPRAM OXALATE
     Dosage: 10 MG, QD
     Route: 048
     Dates: start: 20200108
  16. PROTONIX [Concomitant]
     Active Substance: PANTOPRAZOLE SODIUM
     Dosage: 40 MG, QD
     Route: 048
     Dates: start: 20200203
  17. KEPPRA [Concomitant]
     Active Substance: LEVETIRACETAM
     Dosage: 500 MG, UNK
     Route: 048
     Dates: start: 20200302, end: 20200305
  18. PHENERGAN [Concomitant]
     Active Substance: PROMETHAZINE HYDROCHLORIDE
     Indication: VOMITING
     Dosage: 25 MG, PRN
     Dates: start: 20200221
  19. SODIUM BICARBONATE. [Concomitant]
     Active Substance: SODIUM BICARBONATE
     Dosage: 650 MG, BID
     Route: 048
     Dates: start: 20191204
  20. CARMOL                             /00481901/ [Concomitant]
     Dosage: 20 %, UNK
     Route: 061
     Dates: start: 20200318

REACTIONS (1)
  - Hepatic encephalopathy [Not Recovered/Not Resolved]

NARRATIVE: CASE EVENT DATE: 20200319
